FAERS Safety Report 7898133 (Version 20)
Quarter: 2015Q2

REPORT INFORMATION
  Report Type: Report from Study
  Country: CA (occurrence: CA)
  Receive Date: 20110413
  Receipt Date: 20150601
  Transmission Date: 20150821
  Serious: Yes (Hospitalization, Other)
  Sender: FDA-Public Use
  Company Number: PHHY2011CA28394

PATIENT
  Age: 67 Year
  Sex: Female

DRUGS (7)
  1. SYNTHROID [Concomitant]
     Active Substance: LEVOTHYROXINE SODIUM
     Indication: PRODUCT USED FOR UNKNOWN INDICATION
     Route: 065
  2. SANDOSTATIN LAR DEPOT [Suspect]
     Active Substance: OCTREOTIDE ACETATE
     Indication: CARCINOID TUMOUR
     Dosage: 30 MG, QMO
     Route: 030
     Dates: start: 20070530
  3. BIAXIN [Suspect]
     Active Substance: CLARITHROMYCIN
     Indication: SINUSITIS
     Dosage: 500 MG, BID
     Route: 065
     Dates: start: 20140120
  4. EFFIENT [Concomitant]
     Active Substance: PRASUGREL HYDROCHLORIDE
     Indication: ANTICOAGULANT THERAPY
     Route: 065
  5. SYNTHROID [Concomitant]
     Active Substance: LEVOTHYROXINE SODIUM
     Dosage: 425 MG, QD
     Route: 065
  6. SANDOSTATIN LAR DEPOT [Suspect]
     Active Substance: OCTREOTIDE ACETATE
     Dosage: 30 MG, EVERY 4 WEEKS
     Route: 030
  7. SANDOSTATIN LAR DEPOT [Suspect]
     Active Substance: OCTREOTIDE ACETATE
     Dosage: 30 MG, ONCE EVERY 6 WEEKS
     Route: 030

REACTIONS (39)
  - Blood pressure systolic increased [Unknown]
  - Blood pressure difference of extremities [Unknown]
  - Thyroid function test abnormal [Unknown]
  - Headache [Unknown]
  - Injection site hypoaesthesia [Unknown]
  - Ear pain [Unknown]
  - Cardiac disorder [Unknown]
  - Abdominal pain [Unknown]
  - Erythema [Unknown]
  - Hypertension [Unknown]
  - Balance disorder [Unknown]
  - Arthralgia [Unknown]
  - Chills [Unknown]
  - Neuritis [Recovering/Resolving]
  - Chest pain [Recovering/Resolving]
  - Musculoskeletal pain [Recovering/Resolving]
  - Sinusitis [Unknown]
  - Fatigue [Not Recovered/Not Resolved]
  - Cellulitis [Unknown]
  - Nausea [Unknown]
  - Diarrhoea [Unknown]
  - Fall [Unknown]
  - Urinary tract infection [Unknown]
  - Burning sensation [Unknown]
  - Scratch [Not Recovered/Not Resolved]
  - Eye infection [Unknown]
  - Dizziness [Unknown]
  - Joint swelling [Unknown]
  - Renal pain [Unknown]
  - Arthritis [Recovering/Resolving]
  - Injection site swelling [Unknown]
  - Injection site mass [Unknown]
  - Injection site pain [Unknown]
  - Asthenia [Unknown]
  - Epistaxis [Recovered/Resolved]
  - Limb discomfort [Unknown]
  - Pain in extremity [Unknown]
  - Peripheral swelling [Unknown]
  - Skin discolouration [Recovering/Resolving]

NARRATIVE: CASE EVENT DATE: 20110318
